FAERS Safety Report 5978592-0 (Version None)
Quarter: 2008Q4

REPORT INFORMATION
  Report Type: 
  Country: None (occurrence: None)
  Receive Date: 20081204
  Receipt Date: 20081124
  Transmission Date: 20090506
  Serious: Yes (Hospitalization)
  Sender: FDA-Public Use
  Company Number: B0547557A

PATIENT
  Age: 48 Year
  Sex: Female

DRUGS (3)
  1. LANVIS [Suspect]
     Indication: CROHN'S DISEASE
     Dosage: 20MG PER DAY
     Route: 048
     Dates: start: 20030626, end: 20030723
  2. B12 VITAMIN [Concomitant]
     Indication: VITAMIN B12 DEFICIENCY
     Dosage: 1000MCG WEEKLY
     Dates: start: 20030101
  3. SPECIAFOLDINE [Concomitant]
     Indication: BLOOD FOLATE DECREASED

REACTIONS (4)
  - ERYTHEMA [None]
  - PANCYTOPENIA [None]
  - PURPURA [None]
  - SUBCUTANEOUS ABSCESS [None]
